FAERS Safety Report 5478249-9 (Version None)
Quarter: 2007Q4

REPORT INFORMATION
  Report Type: 
  Country: None (occurrence: None)
  Receive Date: 20071005
  Receipt Date: 20071002
  Transmission Date: 20080405
  Serious: Yes (Other)
  Sender: FDA-Public Use
  Company Number: ES-BAYER-200715808GDS

PATIENT
  Age: 51 Year
  Sex: Male

DRUGS (2)
  1. ACTIRA [Suspect]
     Indication: DRUG USE FOR UNKNOWN INDICATION
     Dosage: TOTAL DAILY DOSE: 400 MG  UNIT DOSE: 400 MG
     Route: 048
     Dates: start: 20070416, end: 20070420
  2. METHADONE HCL [Concomitant]
     Indication: DRUG USE FOR UNKNOWN INDICATION
     Route: 065
     Dates: start: 20070101

REACTIONS (4)
  - BLINDNESS [None]
  - DIARRHOEA [None]
  - HALLUCINATION, AUDITORY [None]
  - HYPERHIDROSIS [None]
